FAERS Safety Report 5957453-7 (Version None)
Quarter: 2008Q4

REPORT INFORMATION
  Report Type: 
  Country: None (occurrence: None)
  Receive Date: 20081118
  Receipt Date: 20081112
  Transmission Date: 20090506
  Serious: Yes (Death, Hospitalization)
  Sender: FDA-Public Use
  Company Number: US-GILEAD-2008-0018607

PATIENT
  Sex: Female

DRUGS (8)
  1. LETAIRIS [Suspect]
     Dates: start: 20080912
  2. METOPROLOL TARTRATE [Concomitant]
  3. DIGOXIN [Concomitant]
  4. PRAVASTATIN [Concomitant]
  5. AGGRENOX [Concomitant]
  6. FUROSEMIDE [Concomitant]
  7. COZAAR [Concomitant]
  8. EFFEXOR XR [Concomitant]

REACTIONS (1)
  - ACUTE RESPIRATORY FAILURE [None]
